FAERS Safety Report 4983338-9 (Version None)
Quarter: 2006Q2

REPORT INFORMATION
  Report Type: 
  Country: None (occurrence: None)
  Receive Date: 20060426
  Receipt Date: 20050922
  Transmission Date: 20061013
  Serious: Yes (Hospitalization, Other)
  Sender: FDA-Public Use
  Company Number: US-MERCK-0509USA03397

PATIENT
  Age: 58 Year
  Sex: Female
  Weight: 111 kg

DRUGS (6)
  1. VIOXX [Suspect]
     Indication: ARTHRITIS
     Route: 048
     Dates: start: 20011101, end: 20040209
  2. CLARITIN [Concomitant]
     Route: 048
  3. EFFEXOR XR [Concomitant]
     Route: 065
  4. HYDRODIURIL [Concomitant]
     Route: 048
  5. LOTENSIN [Concomitant]
     Indication: BLOOD PRESSURE
     Route: 048
  6. NORVASC [Concomitant]
     Indication: BLOOD PRESSURE
     Route: 048

REACTIONS (23)
  - ACUTE MYOCARDIAL INFARCTION [None]
  - ACUTE SINUSITIS [None]
  - CAROTID ARTERY OCCLUSION [None]
  - CHEST PAIN [None]
  - DEPRESSION [None]
  - DIARRHOEA [None]
  - DIASTOLIC DYSFUNCTION [None]
  - DILATATION ATRIAL [None]
  - DYSPHAGIA [None]
  - DYSPNOEA [None]
  - ECZEMA [None]
  - FATIGUE [None]
  - GALLBLADDER DISORDER [None]
  - HAEMORRHOIDS [None]
  - HERNIA [None]
  - HYPERHIDROSIS [None]
  - INSOMNIA [None]
  - MITRAL VALVE INCOMPETENCE [None]
  - NASOPHARYNGITIS [None]
  - NAUSEA [None]
  - PALPITATIONS [None]
  - RHINITIS ALLERGIC [None]
  - SLEEP APNOEA SYNDROME [None]
